FAERS Safety Report 24182208 (Version 2)
Quarter: 2024Q4

REPORT INFORMATION
  Report Type: Spontaneous
  Country: JP (occurrence: JP)
  Receive Date: 20240807
  Receipt Date: 20241015
  Transmission Date: 20250115
  Serious: Yes (Other)
  Sender: RANBAXY
  Company Number: JP-SUN PHARMACEUTICAL INDUSTRIES LTD-2024RR-460796

PATIENT
  Age: 48 Year
  Sex: Female

DRUGS (6)
  1. DOBUTAMINE [Suspect]
     Active Substance: DOBUTAMINE HYDROCHLORIDE
     Indication: Pulmonary arterial hypertension
     Dosage: 1.0 ?G/KG/MIN
     Route: 040
  2. EPOPROSTENOL [Suspect]
     Active Substance: EPOPROSTENOL
     Indication: Pulmonary arterial hypertension
     Route: 040
  3. FUROSEMIDE [Suspect]
     Active Substance: FUROSEMIDE
     Indication: Pulmonary arterial hypertension
     Dosage: 100 MILLIGRAM
     Route: 048
  4. TOLVAPTAN [Suspect]
     Active Substance: TOLVAPTAN
     Indication: Thirst
     Dosage: 15 MILLIGRAM
     Route: 048
  5. TOLVAPTAN [Suspect]
     Active Substance: TOLVAPTAN
     Dosage: 8 MILLIGRAM
     Route: 040
  6. EPLERENONE [Suspect]
     Active Substance: EPLERENONE
     Indication: Pulmonary arterial hypertension
     Dosage: 50 MILLIGRAM
     Route: 065

REACTIONS (2)
  - Thirst [Unknown]
  - Cardiac failure [Unknown]
